FAERS Safety Report 13320506 (Version 1)
Quarter: 2017Q1

REPORT INFORMATION
  Report Type: Spontaneous
  Country: DE (occurrence: DE)
  Receive Date: 20170309
  Receipt Date: 20170309
  Transmission Date: 20170428
  Serious: Yes (Life-Threatening, Disabling, Other)
  Sender: FDA-Public Use
  Company Number: DE-AMGEN-DEUSP2017035497

PATIENT
  Sex: Male
  Weight: 96 kg

DRUGS (5)
  1. CARFILZOMIB [Suspect]
     Active Substance: CARFILZOMIB
     Dosage: 54 MG, UNK
     Route: 042
     Dates: start: 20161021
  2. CARFILZOMIB [Suspect]
     Active Substance: CARFILZOMIB
     Indication: PLASMA CELL MYELOMA
     Dosage: 40 MG, UNK
     Route: 042
     Dates: start: 20160920
  3. CARFILZOMIB [Suspect]
     Active Substance: CARFILZOMIB
     Dosage: 40 MG, UNK
     Route: 042
     Dates: start: 20161001
  4. CARFILZOMIB [Suspect]
     Active Substance: CARFILZOMIB
     Dosage: 54 MG, UNK
     Route: 042
     Dates: start: 20161020
  5. CARFILZOMIB [Suspect]
     Active Substance: CARFILZOMIB
     Dosage: 54 MG, UNK
     Route: 042
     Dates: start: 20161027

REACTIONS (3)
  - Left ventricular dysfunction [Recovered/Resolved with Sequelae]
  - Ventricular failure [Recovered/Resolved with Sequelae]
  - Dilatation ventricular [Recovered/Resolved with Sequelae]

NARRATIVE: CASE EVENT DATE: 201611
